FAERS Safety Report 13512218 (Version 1)
Quarter: 2017Q2

REPORT INFORMATION
  Report Type: Spontaneous
  Country: US (occurrence: US)
  Receive Date: 20170503
  Receipt Date: 20170503
  Transmission Date: 20170830
  Serious: No
  Sender: FDA-Public Use
  Company Number: None

PATIENT
  Age: 51 Year
  Sex: Female
  Weight: 97.52 kg

DRUGS (2)
  1. CIMZIA [Suspect]
     Active Substance: CERTOLIZUMAB PEGOL
     Indication: PSORIASIS
     Dosage: 400MG/ 2ML Q 4 WEEKS SUB Q INJECTION
     Route: 058
  2. CIMZIA [Suspect]
     Active Substance: CERTOLIZUMAB PEGOL
     Indication: OSTEOARTHRITIS
     Dosage: 400MG/ 2ML Q 4 WEEKS SUB Q INJECTION
     Route: 058

REACTIONS (2)
  - Miliaria [None]
  - Condition aggravated [None]

NARRATIVE: CASE EVENT DATE: 20170502
